FAERS Safety Report 16787864 (Version 2)
Quarter: 2021Q2

REPORT INFORMATION
  Report Type: Report from Study
  Country: FR (occurrence: FR)
  Receive Date: 20190909
  Receipt Date: 20210401
  Transmission Date: 20210716
  Serious: Yes (Death, Hospitalization, Other)
  Sender: FDA-Public Use
  Company Number: FR-TAKEDA-2019TUS051322

PATIENT
  Sex: Female
  Weight: 52 kg

DRUGS (1)
  1. IXAZOMIB [Suspect]
     Active Substance: IXAZOMIB
     Indication: PLASMA CELL MYELOMA
     Dosage: UNK
     Route: 065
     Dates: start: 20170926

REACTIONS (8)
  - Hyperaesthesia [Fatal]
  - Diarrhoea [Recovering/Resolving]
  - Thrombocytopenia [Unknown]
  - Neutropenia [Unknown]
  - Nausea [Unknown]
  - Myalgia [Unknown]
  - Cough [Unknown]
  - Anaemia [Unknown]

NARRATIVE: CASE EVENT DATE: 20171201
